FAERS Safety Report 16699905 (Version 4)
Quarter: 2019Q3

REPORT INFORMATION
  Report Type: Spontaneous
  Country: GB (occurrence: GB)
  Receive Date: 20190813
  Receipt Date: 20190911
  Transmission Date: 20191004
  Serious: Yes (Other)
  Sender: FDA-Public Use
  Company Number: GB-ALLERGAN-1932967US

PATIENT
  Sex: Female

DRUGS (2)
  1. AZZALURE [Suspect]
     Active Substance: BOTULINUM TOXIN TYPE A
     Indication: SKIN WRINKLING
     Dosage: 115 UNITS, SINGLE, 0.92 ML FROM 1 ML DILUTION
     Route: 058
     Dates: start: 20180205, end: 20180205
  2. NO SUSPECT ALLERGAN PRODUCT [Suspect]
     Active Substance: UNSPECIFIED INGREDIENT
     Indication: PRODUCT USED FOR UNKNOWN INDICATION

REACTIONS (12)
  - Feeling abnormal [Unknown]
  - Impaired gastric emptying [Not Recovered/Not Resolved]
  - Influenza like illness [Recovered/Resolved]
  - Muscle twitching [Unknown]
  - Weight decreased [Unknown]
  - Depression [Unknown]
  - Mucosal inflammation [Unknown]
  - Neuromuscular toxicity [Unknown]
  - Malnutrition [Unknown]
  - Incorrect route of product administration [Unknown]
  - Pharyngitis [Recovered/Resolved]
  - Prescribed overdose [Unknown]

NARRATIVE: CASE EVENT DATE: 20180205
